FAERS Safety Report 23787716 (Version 1)
Quarter: 2024Q2

REPORT INFORMATION
  Report Type: Other
  Country: CA (occurrence: CA)
  Receive Date: 20240426
  Receipt Date: 20240426
  Transmission Date: 20240716
  Serious: Yes (Hospitalization, Other)
  Sender: FDA-Public Use
  Company Number: CA-PFIZER INC-202400094795

PATIENT

DRUGS (6)
  1. ADALIMUMAB [Suspect]
     Active Substance: ADALIMUMAB\ISOPROPYL ALCOHOL
     Indication: Crohn^s disease
     Dosage: UNK (SOLUTION SUBCUTANEOUS)
     Route: 065
  2. ADALIMUMAB [Suspect]
     Active Substance: ADALIMUMAB\ISOPROPYL ALCOHOL
     Indication: Colitis ulcerative
     Dosage: UNK
  3. INFLIXIMAB [Suspect]
     Active Substance: INFLIXIMAB
     Indication: Crohn^s disease
     Dosage: UNK (INJECTION)
  4. INFLIXIMAB [Suspect]
     Active Substance: INFLIXIMAB
     Indication: Colitis ulcerative
  5. INFLIXIMAB [Suspect]
     Active Substance: INFLIXIMAB
     Indication: Crohn^s disease
     Dosage: UNK
     Route: 065
  6. INFLIXIMAB [Suspect]
     Active Substance: INFLIXIMAB
     Indication: Colitis ulcerative

REACTIONS (19)
  - Anal abscess [Unknown]
  - Clostridium difficile infection [Unknown]
  - Colitis ulcerative [Unknown]
  - Crohn^s disease [Unknown]
  - Deep vein thrombosis [Unknown]
  - Diabetic foot infection [Unknown]
  - Fungaemia [Unknown]
  - Herpes zoster [Unknown]
  - Infusion related reaction [Unknown]
  - Oral candidiasis [Unknown]
  - Pneumonia [Unknown]
  - Psoriasis [Unknown]
  - Pulmonary embolism [Unknown]
  - Sepsis [Unknown]
  - Skin cancer [Unknown]
  - Small intestinal obstruction [Unknown]
  - Therapeutic response decreased [Unknown]
  - Therapy non-responder [Unknown]
  - Urinary tract infection [Unknown]
